FAERS Safety Report 12916901 (Version 2)
Quarter: 2017Q2

REPORT INFORMATION
  Report Type: Spontaneous
  Country: US (occurrence: US)
  Receive Date: 20161107
  Receipt Date: 20170606
  Transmission Date: 20170830
  Serious: No
  Sender: FDA-Public Use
  Company Number: US-AMGEN-USASP2016129175

PATIENT
  Age: 79 Year
  Sex: Female

DRUGS (2)
  1. ARANESP [Suspect]
     Active Substance: DARBEPOETIN ALFA
     Indication: ANAEMIA
     Dosage: UNK, ONCE A WEEK OR ONCE EVERY TWO WEEKS
     Route: 065
     Dates: end: 20150831
  2. PROCRIT [Suspect]
     Active Substance: ERYTHROPOIETIN
     Indication: ANAEMIA
     Dosage: UNK UNK, ONCE EVERY TWO WEEK
     Route: 065

REACTIONS (2)
  - Drug ineffective [Unknown]
  - Haemoglobin abnormal [Not Recovered/Not Resolved]
